FAERS Safety Report 6974932-4 (Version None)
Quarter: 2010Q3

REPORT INFORMATION
  Report Type: 
  Country: None (occurrence: None)
  Receive Date: 20100909
  Receipt Date: 20090226
  Transmission Date: 20110219
  Serious: No
  Sender: FDA-Public Use
  Company Number: US-WYE-H07609909

PATIENT
  Sex: Male
  Weight: 122.58 kg

DRUGS (8)
  1. PRISTIQ [Suspect]
     Indication: ANXIETY
     Route: 048
     Dates: start: 20081201, end: 20090102
  2. ALTACE [Concomitant]
  3. SERENOA REPENS [Concomitant]
  4. METOPROLOL TARTRATE [Concomitant]
  5. SIMVASTATIN [Concomitant]
  6. ACETYLSALICYLIC ACID [Concomitant]
  7. PLAVIX [Concomitant]
  8. AMLODIPINE [Concomitant]

REACTIONS (1)
  - PAIN OF SKIN [None]
